FAERS Safety Report 4983003-8 (Version None)
Quarter: 2006Q2

REPORT INFORMATION
  Report Type: 
  Country: None (occurrence: None)
  Receive Date: 20060420
  Receipt Date: 20060410
  Transmission Date: 20061013
  Serious: Yes (Other)
  Sender: FDA-Public Use
  Company Number: 2006049564

PATIENT
  Age: 84 Year
  Sex: Female
  Weight: 56.6996 kg

DRUGS (5)
  1. LIPITOR [Suspect]
     Indication: CARDIAC DISORDER
     Dosage: 20 MG (20 MG, 1 IN 1 D), ORAL
     Route: 048
  2. LOTREL (AMLODIPINE, BENAZEPRIL HYDROCHORIDE) [Concomitant]
  3. WARFARIN SODIUM [Concomitant]
  4. TOPROL-XL [Concomitant]
  5. LANOXIN [Concomitant]

REACTIONS (2)
  - NASAL CAVITY CANCER [None]
  - VAGINAL CANCER [None]
